FAERS Safety Report 16619936 (Version 1)
Quarter: 2019Q3

REPORT INFORMATION
  Report Type: Spontaneous
  Country: FR (occurrence: FR)
  Receive Date: 20190723
  Receipt Date: 20190723
  Transmission Date: 20191004
  Serious: Yes (Other)
  Sender: FDA-Public Use
  Company Number: FR-009507513-1907FRA011866

PATIENT
  Age: 59 Year
  Sex: Female

DRUGS (1)
  1. NORSET [Suspect]
     Active Substance: MIRTAZAPINE
     Indication: NEUROPROSTHESIS IMPLANTATION
     Dosage: 15 MILLIGRAM/DAY
     Route: 048
     Dates: start: 201906

REACTIONS (18)
  - Gingival pain [Unknown]
  - White blood cell count increased [Unknown]
  - Salivary hypersecretion [Unknown]
  - Loss of consciousness [Unknown]
  - Hyperhidrosis [Unknown]
  - Heart rate increased [Unknown]
  - Dry mouth [Unknown]
  - Joint swelling [Not Recovered/Not Resolved]
  - Pyrexia [Unknown]
  - Blood pressure increased [Unknown]
  - Paraesthesia [Not Recovered/Not Resolved]
  - Oropharyngeal pain [Unknown]
  - Constipation [Unknown]
  - Abnormal dreams [Unknown]
  - Suicidal ideation [Unknown]
  - Alexithymia [Unknown]
  - Oral pain [Unknown]
  - Off label use [Unknown]

NARRATIVE: CASE EVENT DATE: 2019
